FAERS Safety Report 7691664-8 (Version None)
Quarter: 2011Q3

REPORT INFORMATION
  Report Type: 
  Country: None (occurrence: None)
  Receive Date: 20110818
  Receipt Date: 20110809
  Transmission Date: 20111222
  Serious: Yes (Hospitalization)
  Sender: FDA-Public Use
  Company Number: BR-MEDIMMUNE-MEDI-0013428

PATIENT
  Sex: Male
  Weight: 4.53 kg

DRUGS (6)
  1. SYNAGIS [Suspect]
     Route: 030
     Dates: start: 20110610, end: 20110610
  2. FUROSEMIDE [Concomitant]
     Route: 048
     Dates: start: 20110501
  3. SPIRONOLACTONE [Concomitant]
     Route: 048
     Dates: start: 20110601
  4. DIGOXIN [Concomitant]
     Route: 048
     Dates: start: 20110501
  5. CAPTOPRIL [Concomitant]
     Indication: BLOOD PRESSURE
     Route: 048
     Dates: start: 20110501
  6. SYNAGIS [Suspect]

REACTIONS (4)
  - PRODUCTIVE COUGH [None]
  - DEHYDRATION [None]
  - VOMITING [None]
  - DIARRHOEA [None]
